FAERS Safety Report 21391371 (Version 1)
Quarter: 2022Q3

REPORT INFORMATION
  Report Type: Spontaneous
  Country: DE (occurrence: DE)
  Receive Date: 20220929
  Receipt Date: 20220929
  Transmission Date: 20221026
  Serious: Yes (Hospitalization, Other)
  Sender: FDA-Public Use
  Company Number: DE-NOVARTISPH-NVSC2022DE218028

PATIENT
  Age: 89 Year
  Sex: Female
  Weight: 76 kg

DRUGS (7)
  1. ASPIRIN [Suspect]
     Active Substance: ASPIRIN
     Indication: Product used for unknown indication
     Dosage: 100 MG, QD, (1-0-0-0)
     Route: 048
  2. ERYFER [Concomitant]
     Indication: Product used for unknown indication
     Dosage: 100 MG, QD, (1-0-0-0)
     Route: 048
  3. METAMIZOLE [Concomitant]
     Active Substance: METAMIZOLE
     Indication: Product used for unknown indication
     Dosage: 500 MG, BEI BEDARF BIS ZU VIER TABLETTEN PRO TAG FESTMEDIKATION EINE TABLETTE FR?H UND ABEND
     Route: 048
  4. BISOPROLOL [Concomitant]
     Active Substance: BISOPROLOL
     Indication: Product used for unknown indication
     Dosage: 5|12.5 MG, QD ( 1-0-0-0)
     Route: 048
  5. CHOLECALCIFEROL [Concomitant]
     Active Substance: CHOLECALCIFEROL
     Indication: Product used for unknown indication
     Dosage: 20000 IE, ALLE ZWEI WOCHEN EINE KAPSEL
     Route: 048
  6. ALENDRONIC ACID [Concomitant]
     Active Substance: ALENDRONIC ACID
     Indication: Product used for unknown indication
     Dosage: 70 MG, QD, (1-0-0-0)
     Route: 048
  7. CANDESARTAN [Concomitant]
     Active Substance: CANDESARTAN
     Indication: Product used for unknown indication
     Dosage: 8 MG,  (2-0-1-0)
     Route: 048

REACTIONS (6)
  - Upper gastrointestinal haemorrhage [Unknown]
  - Gastritis haemorrhagic [Unknown]
  - Dyspepsia [Unknown]
  - Abdominal pain [Unknown]
  - Haematemesis [Unknown]
  - Nausea [Unknown]
